FAERS Safety Report 24585764 (Version 1)
Quarter: 2024Q4

REPORT INFORMATION
  Report Type: Spontaneous
  Country: US (occurrence: None)
  Receive Date: 20241106
  Receipt Date: 20241106
  Transmission Date: 20250115
  Serious: Yes (Other)
  Sender: Public
  Company Number: None

PATIENT
  Age: 61 Year
  Sex: Female

DRUGS (1)
  1. OTEZLA [Suspect]
     Active Substance: APREMILAST
     Dosage: FREQUENCY : TWICE A DAY;?

REACTIONS (6)
  - Diarrhoea [None]
  - Nausea [None]
  - Vomiting [None]
  - Weight decreased [None]
  - Dyspnoea [None]
  - Chest discomfort [None]
